FAERS Safety Report 11964816 (Version 1)
Quarter: 2016Q1

REPORT INFORMATION
  Report Type: Spontaneous
  Country: GB (occurrence: GB)
  Receive Date: 20160127
  Receipt Date: 20160127
  Transmission Date: 20160526
  Serious: Yes (Other)
  Sender: FDA-Public Use
  Company Number: GB-SUN PHARMACEUTICAL INDUSTRIES LTD-2016RR-109992

PATIENT

DRUGS (1)
  1. FLUOXETINE [Suspect]
     Active Substance: FLUOXETINE HYDROCHLORIDE
     Indication: DEPRESSION
     Dosage: 20 MG, UNK
     Route: 048

REACTIONS (6)
  - Aggression [Recovering/Resolving]
  - Condition aggravated [Recovering/Resolving]
  - Mood swings [Recovered/Resolved with Sequelae]
  - Intentional self-injury [Recovering/Resolving]
  - Paranoia [Recovering/Resolving]
  - Agitation [Recovering/Resolving]
